FAERS Safety Report 13108565 (Version 1)
Quarter: 2017Q1

REPORT INFORMATION
  Report Type: Spontaneous
  Country: BE (occurrence: BE)
  Receive Date: 20170112
  Receipt Date: 20170112
  Transmission Date: 20170428
  Serious: Yes (Other)
  Sender: FDA-Public Use
  Company Number: BE-TOLMAR, INC.-2017BE000296

PATIENT
  Age: 68 Year
  Sex: Male

DRUGS (11)
  1. TAMSULOSIN [Concomitant]
     Active Substance: TAMSULOSIN
     Dosage: UNK
  2. CASODEX [Concomitant]
     Active Substance: BICALUTAMIDE
     Dosage: UNK
     Dates: start: 20151120, end: 20160114
  3. FINASTERIDE. [Concomitant]
     Active Substance: FINASTERIDE
     Dosage: UNK
     Dates: start: 20151120, end: 201605
  4. GLIQUIDONE [Concomitant]
     Active Substance: GLIQUIDONE
  5. METFORMAX [Concomitant]
     Active Substance: METFORMIN HYDROCHLORIDE
     Dosage: UNK
  6. ELIGARD [Suspect]
     Active Substance: LEUPROLIDE ACETATE
     Dosage: 45 MG, TOTAL DOSE
     Route: 065
     Dates: start: 20160520, end: 20160520
  7. RANITIDINE HYDROCHLORIDE. [Concomitant]
     Active Substance: RANITIDINE HYDROCHLORIDE
     Dosage: UNK
  8. PREVNAR 13 [Suspect]
     Active Substance: PNEUMOCOCCAL 13-VALENT CONJUGATE VACCINE
     Dosage: TOTAL DOSE, AT DELTOID
     Route: 065
     Dates: start: 20161123, end: 20161123
  9. ALLOPURINOL. [Concomitant]
     Active Substance: ALLOPURINOL
     Dosage: UNK
  10. ELIGARD [Suspect]
     Active Substance: LEUPROLIDE ACETATE
     Indication: PROSTATE CANCER
     Dosage: 45 MG, TOTAL DOSE
     Route: 065
     Dates: start: 20151204, end: 20151204
  11. PREVNAR 13 [Suspect]
     Active Substance: PNEUMOCOCCAL 13-VALENT CONJUGATE VACCINE
     Indication: IMMUNISATION
     Dosage: UNK
     Route: 065
     Dates: start: 2013, end: 2013

REACTIONS (4)
  - Injection site pain [Unknown]
  - Leukopenia [Recovering/Resolving]
  - Chills [Recovered/Resolved]
  - Neutropenia [Recovering/Resolving]

NARRATIVE: CASE EVENT DATE: 20161124
